FAERS Safety Report 13807899 (Version 1)
Quarter: 2017Q3

REPORT INFORMATION
  Report Type: Spontaneous
  Country: US (occurrence: US)
  Receive Date: 20170728
  Receipt Date: 20170728
  Transmission Date: 20171127
  Serious: No
  Sender: FDA-Public Use
  Company Number: US-DEPOMED, INC.-US-2017DEP000518

PATIENT

DRUGS (1)
  1. LAZANDA [Suspect]
     Active Substance: FENTANYL CITRATE
     Indication: NEOPLASM MALIGNANT
     Dosage: INSTILL 1 SPRAY PER EPISODE, MAY REPEAT AFTER 2 HOURS. MAXIMUM 4 DOSES PER DAY
     Route: 045
     Dates: start: 20160907

REACTIONS (2)
  - Product dosage form issue [Not Recovered/Not Resolved]
  - Product use in unapproved indication [Unknown]

NARRATIVE: CASE EVENT DATE: 20160907
